FAERS Safety Report 6717327-0 (Version None)
Quarter: 2010Q2

REPORT INFORMATION
  Report Type: 
  Country: None (occurrence: None)
  Receive Date: 20100510
  Receipt Date: 20100429
  Transmission Date: 20101027
  Serious: Yes (Hospitalization)
  Sender: FDA-Public Use
  Company Number: BR-ASTRAZENECA-2010SE19699

PATIENT
  Age: 35 Year
  Sex: Female
  Weight: 85 kg

DRUGS (4)
  1. SEROQUEL [Suspect]
     Indication: SCHIZOPHRENIA
     Route: 048
     Dates: start: 20100101, end: 20100301
  2. SEROQUEL [Suspect]
     Route: 048
     Dates: start: 20100301, end: 20100301
  3. SEROQUEL [Suspect]
     Route: 048
     Dates: start: 20100401
  4. RIVOTRIL [Concomitant]
     Route: 048
     Dates: start: 20100201

REACTIONS (3)
  - DISORIENTATION [None]
  - DRUG DOSE OMISSION [None]
  - MOOD SWINGS [None]
